FAERS Safety Report 5824806-7 (Version None)
Quarter: 2008Q3

REPORT INFORMATION
  Report Type: 
  Country: None (occurrence: None)
  Receive Date: 20080728
  Receipt Date: 20080723
  Transmission Date: 20090109
  Serious: Yes (Death, Hospitalization)
  Sender: FDA-Public Use
  Company Number: PHEH1999US02059

PATIENT
  Sex: Male

DRUGS (3)
  1. RAD 666 RAD+ [Suspect]
     Dosage: 0.5 MG, BID
     Route: 048
     Dates: start: 19990218, end: 19990421
  2. NEORAL [Suspect]
     Route: 048
     Dates: start: 19990217
  3. PREDNISONE [Suspect]
     Route: 048
     Dates: start: 19990220

REACTIONS (7)
  - CEREBROVASCULAR ACCIDENT [None]
  - DEATH [None]
  - FUNGAL INFECTION [None]
  - MENINGITIS [None]
  - PERITONITIS [None]
  - PULMONARY HYPERTENSION [None]
  - RESPIRATORY FAILURE [None]
